FAERS Safety Report 9576553 (Version 1)
Quarter: 2013Q4

REPORT INFORMATION
  Report Type: Spontaneous
  Country: US (occurrence: US)
  Receive Date: 20131001
  Receipt Date: 20131001
  Transmission Date: 20140711
  Serious: No
  Sender: FDA-Public Use
  Company Number: US-AMGEN-USASP2013003570

PATIENT
  Age: 49 Year
  Sex: Male
  Weight: 155 kg

DRUGS (6)
  1. ENBREL [Suspect]
     Indication: PSORIASIS
     Dosage: 50 MG, 2 TIMES/WK
     Route: 058
  2. ENBREL [Suspect]
     Indication: PSORIATIC ARTHROPATHY
  3. KLONOPIN [Concomitant]
     Dosage: 1 MG, UNK
  4. FENOFIBRATE [Concomitant]
     Dosage: 134 MG, UNK
  5. WARFARIN [Concomitant]
     Dosage: 1 MG, UNK
  6. LEXAPRO [Concomitant]
     Dosage: 10 MG, UNK

REACTIONS (2)
  - Arthralgia [Unknown]
  - Drug effect incomplete [Unknown]
